FAERS Safety Report 6803906-9 (Version None)
Quarter: 2010Q2

REPORT INFORMATION
  Report Type: 
  Country: None (occurrence: None)
  Receive Date: 20100628
  Receipt Date: 20100621
  Transmission Date: 20101027
  Serious: Yes (Hospitalization)
  Sender: FDA-Public Use
  Company Number: PHHO2010FR09403

PATIENT
  Sex: Male
  Weight: 65 kg

DRUGS (3)
  1. NEORAL [Suspect]
     Indication: RENAL TRANSPLANT
     Dosage: UNK
     Route: 048
     Dates: start: 20100508
  2. CELLCEPT [Suspect]
     Indication: RENAL TRANSPLANT
     Dosage: 500MG
     Route: 048
     Dates: start: 20100508
  3. CORTANCYL [Suspect]
     Indication: RENAL TRANSPLANT
     Dosage: 10 MG

REACTIONS (1)
  - INTESTINAL RESECTION [None]
